FAERS Safety Report 17233484 (Version 2)
Quarter: 2020Q4

REPORT INFORMATION
  Report Type: Report from Study
  Country: US (occurrence: US)
  Receive Date: 20200104
  Receipt Date: 20201211
  Transmission Date: 20210113
  Serious: No
  Sender: FDA-Public Use
  Company Number: NVSC2019US085295

PATIENT
  Age: 39 Year
  Sex: Male

DRUGS (1)
  1. COSENTYX [Suspect]
     Active Substance: SECUKINUMAB
     Indication: PSORIASIS
     Dosage: 300 MG, Q4W
     Route: 065
     Dates: start: 20190716

REACTIONS (2)
  - Bronchitis [Unknown]
  - Viral infection [Unknown]

NARRATIVE: CASE EVENT DATE: 201910
